FAERS Safety Report 9366640 (Version 1)
Quarter: 2013Q2

REPORT INFORMATION
  Report Type: Spontaneous
  Country: US (occurrence: US)
  Receive Date: 20130625
  Receipt Date: 20130625
  Transmission Date: 20140414
  Serious: No
  Sender: FDA-Public Use
  Company Number: US-009507513-1306USA011380

PATIENT
  Sex: Female

DRUGS (1)
  1. DR. SCHOLL^S FREEZE AWAY COMMON + PLANTAR WART REMOVER [Suspect]
     Indication: SKIN PAPILLOMA
     Dosage: UNK, ONCE
     Route: 061

REACTIONS (5)
  - Application site ulcer [Not Recovered/Not Resolved]
  - Application site nodule [Not Recovered/Not Resolved]
  - Application site discolouration [Not Recovered/Not Resolved]
  - Device use error [Unknown]
  - Product label confusion [Unknown]
